FAERS Safety Report 24641935 (Version 3)
Quarter: 2024Q4

REPORT INFORMATION
  Report Type: Spontaneous
  Country: JP (occurrence: JP)
  Receive Date: 20241120
  Receipt Date: 20241127
  Transmission Date: 20250115
  Serious: Yes (Death, Other)
  Sender: ABBVIE
  Company Number: JP-ABBVIE-5751263

PATIENT
  Age: 63 Year
  Sex: Male

DRUGS (3)
  1. VENCLEXTA [Suspect]
     Active Substance: VENETOCLAX
     Indication: Acute myeloid leukaemia
     Dosage: FORM STRENGTH: 100 MILLIGRAM
     Route: 048
  2. CYTARABINE [Concomitant]
     Active Substance: CYTARABINE
     Indication: Acute myeloid leukaemia
  3. AZACITIDINE [Suspect]
     Active Substance: AZACITIDINE
     Indication: Acute myeloid leukaemia
     Dosage: 70 % DOSE (50 MG/M^2). DURATION: 5 DAYS/COURSE
     Route: 058

REACTIONS (4)
  - Sepsis [Fatal]
  - Neutropenia [Unknown]
  - Acute myeloid leukaemia recurrent [Unknown]
  - Allogenic stem cell transplantation [Unknown]
